FAERS Safety Report 13472115 (Version 1)
Quarter: 2017Q2

REPORT INFORMATION
  Report Type: Spontaneous
  Country: US (occurrence: US)
  Receive Date: 20170424
  Receipt Date: 20170424
  Transmission Date: 20170830
  Serious: No
  Sender: FDA-Public Use
  Company Number: US-009507513-1704USA011183

PATIENT
  Sex: Male

DRUGS (1)
  1. ZETIA [Suspect]
     Active Substance: EZETIMIBE
     Dosage: 10 MG, EVERY OTHER DAY
     Route: 048

REACTIONS (3)
  - No adverse event [Unknown]
  - Inappropriate schedule of drug administration [Unknown]
  - Inability to afford medication [Unknown]
